FAERS Safety Report 4897962-5 (Version None)
Quarter: 2006Q1

REPORT INFORMATION
  Report Type: 
  Country: None (occurrence: None)
  Receive Date: 20060130
  Receipt Date: 20060123
  Transmission Date: 20060701
  Serious: Yes (Life-Threatening)
  Sender: FDA-Public Use
  Company Number: 200510407BYL

PATIENT
  Age: 44 Year
  Sex: Male
  Weight: 53 kg

DRUGS (7)
  1. CIPROFLOXACIN [Suspect]
     Indication: PNEUMONIA
     Dosage: 400 MG, TOTAL DAILY, INTRAVENOUS
     Route: 042
     Dates: start: 20050813, end: 20050818
  2. VANCOMYCIN [Concomitant]
  3. CEFTAZIDIME [Concomitant]
  4. OMEPRAL [Concomitant]
  5. HICALIQ [Concomitant]
  6. INTRAFAT [Concomitant]
  7. MIDAZOLAM [Concomitant]

REACTIONS (7)
  - COMA [None]
  - DRUG LEVEL DECREASED [None]
  - HYPOGLYCAEMIA [None]
  - HYPOXIA [None]
  - SEPSIS [None]
  - SOMNOLENCE [None]
  - THERAPY NON-RESPONDER [None]
